FAERS Safety Report 13222516 (Version 1)
Quarter: 2017Q1

REPORT INFORMATION
  Report Type: Other
  Country: US (occurrence: US)
  Receive Date: 20170212
  Receipt Date: 20170212
  Transmission Date: 20170428
  Serious: No
  Sender: FDA-Public Use
  Company Number: US-ACORDA-ACO_121021_2016

PATIENT
  Age: 41 Year
  Sex: Female

DRUGS (1)
  1. AMPYRA [Suspect]
     Active Substance: DALFAMPRIDINE
     Indication: MULTIPLE SCLEROSIS
     Dosage: 10 MG, BID
     Route: 048

REACTIONS (7)
  - Feeling abnormal [Unknown]
  - Dizziness [Unknown]
  - Dysarthria [Unknown]
  - Fatigue [Unknown]
  - Nystagmus [Unknown]
  - Balance disorder [Unknown]
  - Neuropathy peripheral [Unknown]
